FAERS Safety Report 15966237 (Version 1)
Quarter: 2019Q1

REPORT INFORMATION
  Report Type: Spontaneous
  Country: US (occurrence: US)
  Receive Date: 20190214
  Receipt Date: 20190214
  Transmission Date: 20190418
  Serious: Yes (Disabling)
  Sender: FDA-Public Use
  Company Number: None

PATIENT
  Age: 19 Year
  Sex: Female
  Weight: 49.5 kg

DRUGS (10)
  1. IBUPROFEN/TYLENOL [Concomitant]
  2. VITAMIN D [Concomitant]
     Active Substance: CHOLECALCIFEROL
  3. DEXTROAMPHET SACCHARAT, AMPHET ASPARTATE, DEXTROAMPHET SULFATE AND AMPHET SULFAT [Suspect]
     Active Substance: AMPHETAMINE ASPARTATE\AMPHETAMINE SULFATE\DEXTROAMPHETAMINE SACCHARATE\DEXTROAMPHETAMINE SULFATE
     Indication: ATTENTION DEFICIT/HYPERACTIVITY DISORDER
     Dosage: ?          QUANTITY:2 TABLET(S);?
     Route: 048
  4. SPRINTEC [Concomitant]
     Active Substance: ETHINYL ESTRADIOL\NORGESTIMATE
  5. WOMEN^S VITAMIN SUPPLEMENT [Concomitant]
  6. MELATONIN [Concomitant]
     Active Substance: MELATONIN
  7. VITAMIN B12 [Concomitant]
     Active Substance: CYANOCOBALAMIN
  8. FLUOXETINE [Concomitant]
     Active Substance: FLUOXETINE HYDROCHLORIDE
  9. VITAMIN C [Concomitant]
     Active Substance: ASCORBIC ACID
  10. MAGNESIUM [Concomitant]
     Active Substance: MAGNESIUM

REACTIONS (18)
  - Anger [None]
  - Mood swings [None]
  - Feeling guilty [None]
  - Anxiety [None]
  - Product substitution issue [None]
  - Nausea [None]
  - Aura [None]
  - Muscle tightness [None]
  - Feeling abnormal [None]
  - Frustration tolerance decreased [None]
  - Lethargy [None]
  - Musculoskeletal stiffness [None]
  - Depression [None]
  - Decreased appetite [None]
  - Insomnia [None]
  - Somnolence [None]
  - Abdominal pain upper [None]
  - Panic attack [None]

NARRATIVE: CASE EVENT DATE: 20190213
